FAERS Safety Report 23034209 (Version 2)
Quarter: 2023Q4

REPORT INFORMATION
  Report Type: Spontaneous
  Country: JP (occurrence: JP)
  Receive Date: 20231005
  Receipt Date: 20231113
  Transmission Date: 20240110
  Serious: Yes (Other)
  Sender: FDA-Public Use
  Company Number: JP-GLAXOSMITHKLINE-JP2023JPN134038

PATIENT

DRUGS (1)
  1. DAPRODUSTAT [Suspect]
     Active Substance: DAPRODUSTAT
     Indication: Nephrogenic anaemia
     Dosage: 4 MG
     Route: 048
     Dates: start: 2023, end: 202307

REACTIONS (2)
  - Haemoglobinaemia [Not Recovered/Not Resolved]
  - Therapeutic response increased [Unknown]

NARRATIVE: CASE EVENT DATE: 20230701
